FAERS Safety Report 24735480 (Version 2)
Quarter: 2024Q4

REPORT INFORMATION
  Report Type: Spontaneous
  Country: CA (occurrence: CA)
  Receive Date: 20241216
  Receipt Date: 20241220
  Transmission Date: 20250114
  Serious: Yes (Other)
  Sender: GLAXOSMITHKLINE
  Company Number: CA-GSK-CA2024AMR155045

PATIENT

DRUGS (2)
  1. TRELEGY ELLIPTA [Suspect]
     Active Substance: FLUTICASONE FUROATE\UMECLIDINIUM BROMIDE\VILANTEROL TRIFENATATE
     Indication: Product used for unknown indication
     Dosage: UNK
     Route: 065
  2. GLYCOPYRRONIUM\INDACATEROL [Suspect]
     Active Substance: GLYCOPYRRONIUM\INDACATEROL
     Indication: Product used for unknown indication
     Dosage: UNK

REACTIONS (15)
  - Renal impairment [Unknown]
  - Abdominal wall disorder [Unknown]
  - Asthenia [Unknown]
  - Chills [Unknown]
  - Discomfort [Unknown]
  - Hypoacusis [Unknown]
  - Hypotonic urinary bladder [Unknown]
  - Malaise [Unknown]
  - Memory impairment [Unknown]
  - Palpitations [Unknown]
  - Respiratory disorder [Unknown]
  - Skin disorder [Unknown]
  - Tooth disorder [Unknown]
  - Urinary tract disorder [Unknown]
  - Vision blurred [Unknown]
